FAERS Safety Report 8964992 (Version 1)
Quarter: 2012Q4

REPORT INFORMATION
  Report Type: 
  Country: CN (occurrence: CN)
  Receive Date: 20121213
  Receipt Date: 20121213
  Transmission Date: 20130627
  Serious: Yes (Other)
  Sender: FDA-Public Use
  Company Number: CN-BAYER-2012-128823

PATIENT
  Age: 82 Year
  Sex: Male

DRUGS (1)
  1. GLUCOBAY [Suspect]
     Indication: DIABETES
     Dosage: 50 mg, TID
     Route: 048
     Dates: start: 20101128, end: 20101203

REACTIONS (1)
  - Hypoglycaemia [Recovering/Resolving]
